FAERS Safety Report 5853987-4 (Version None)
Quarter: 2008Q3

REPORT INFORMATION
  Report Type: 
  Country: None (occurrence: None)
  Receive Date: 20080822
  Receipt Date: 20080808
  Transmission Date: 20090109
  Serious: Yes (Other)
  Sender: FDA-Public Use
  Company Number: US-AMGEN-KDL293380

PATIENT
  Sex: Female
  Weight: 80.8 kg

DRUGS (26)
  1. NEULASTA [Suspect]
     Indication: CHEMOTHERAPY
     Route: 058
     Dates: start: 20080620, end: 20080704
  2. FLUOROURACIL [Concomitant]
  3. LEUCOVORIN CALCIUM [Concomitant]
  4. OXALIPLATIN [Concomitant]
  5. ALOXI [Concomitant]
  6. MAGNESIUM SULFATE [Concomitant]
  7. CALCIUM GLUCONATE [Concomitant]
  8. DECADRON SRC [Concomitant]
  9. BENADRYL [Concomitant]
  10. COMPAZINE [Concomitant]
  11. SYNTHROID [Concomitant]
  12. METFORMIN [Concomitant]
  13. FERROUS SULFATE TAB [Concomitant]
  14. VITAMIN B-12 [Concomitant]
     Dates: start: 20080701
  15. LOPRESSOR [Concomitant]
  16. PREVACID [Concomitant]
  17. XANAX [Concomitant]
  18. AMBIEN [Concomitant]
  19. LUMIGAN [Concomitant]
     Route: 047
  20. MIRALAX [Concomitant]
  21. VICODIN [Concomitant]
  22. CELEXA [Concomitant]
  23. HYDROCHLOROTHIAZIDE [Concomitant]
  24. COUMADIN [Concomitant]
  25. DIFLUCAN [Concomitant]
  26. HALCION [Concomitant]

REACTIONS (3)
  - AMNESIA [None]
  - FALL [None]
  - LOSS OF CONSCIOUSNESS [None]
